FAERS Safety Report 11010294 (Version 1)
Quarter: 2015Q2

REPORT INFORMATION
  Report Type: Spontaneous
  Country: JP (occurrence: JP)
  Receive Date: 20150410
  Receipt Date: 20150410
  Transmission Date: 20150821
  Serious: Yes (Other)
  Sender: FDA-Public Use
  Company Number: JP-WATSON-2015-07409

PATIENT
  Age: 22 Year
  Sex: Male

DRUGS (3)
  1. LAMOTRIGINE (UNKNOWN) [Suspect]
     Active Substance: LAMOTRIGINE
     Indication: BIPOLAR DISORDER
     Dosage: 125 MG, DAILY
     Route: 065
  2. LAMOTRIGINE (UNKNOWN) [Suspect]
     Active Substance: LAMOTRIGINE
     Dosage: 25 MG, DAILY
     Route: 065
  3. CLOMIPRAMINE (UNKNOWN) [Suspect]
     Active Substance: CLOMIPRAMINE
     Indication: OBSESSIVE-COMPULSIVE DISORDER
     Dosage: 100 MG, DAILY
     Route: 065

REACTIONS (3)
  - Hypomania [Recovered/Resolved]
  - Homicidal ideation [Recovered/Resolved]
  - Anger [Recovered/Resolved]
